FAERS Safety Report 17203446 (Version 1)
Quarter: 2019Q4

REPORT INFORMATION
  Report Type: Spontaneous
  Country: US (occurrence: US)
  Receive Date: 20191226
  Receipt Date: 20191226
  Transmission Date: 20200122
  Serious: No
  Sender: FDA-Public Use
  Company Number: US-TEVA-2019-US-1158825

PATIENT

DRUGS (2)
  1. TEVA CLONAZEPAM [Suspect]
     Active Substance: CLONAZEPAM
  2. TEVA CLONAZEPAM [Suspect]
     Active Substance: CLONAZEPAM

REACTIONS (4)
  - Drug intolerance [Unknown]
  - Product substitution issue [Unknown]
  - Sedation [Unknown]
  - Somnolence [Unknown]
